FAERS Safety Report 15835839 (Version 3)
Quarter: 2019Q1

REPORT INFORMATION
  Report Type: Spontaneous
  Country: DE (occurrence: DE)
  Receive Date: 20190117
  Receipt Date: 20190222
  Transmission Date: 20190417
  Serious: Yes (Hospitalization, Other)
  Sender: FDA-Public Use
  Company Number: DE-TEVA-2019-DE-999571

PATIENT
  Sex: Male

DRUGS (4)
  1. DAXAS 500 [Interacting]
     Active Substance: ROFLUMILAST
     Indication: CHRONIC OBSTRUCTIVE PULMONARY DISEASE
     Route: 065
     Dates: start: 2017
  2. SPIRIVA [Concomitant]
     Active Substance: TIOTROPIUM BROMIDE MONOHYDRATE
     Indication: CHRONIC OBSTRUCTIVE PULMONARY DISEASE
     Route: 065
  3. RELVAR ELLIPTA [Concomitant]
     Active Substance: FLUTICASONE FUROATE\VILANTEROL TRIFENATATE
     Indication: CHRONIC OBSTRUCTIVE PULMONARY DISEASE
     Route: 065
  4. CARBAMAZEPIN RETARD [Suspect]
     Active Substance: CARBAMAZEPINE
     Indication: EPILEPSY
     Dosage: INTAKE FOR 20 YEARS
     Route: 065

REACTIONS (11)
  - Rales [Unknown]
  - Dyspnoea [Unknown]
  - Escherichia infection [Unknown]
  - Drug interaction [Unknown]
  - Fatigue [Recovered/Resolved]
  - Klebsiella infection [Unknown]
  - Pneumonitis [Unknown]
  - Productive cough [Unknown]
  - Staphylococcal infection [Unknown]
  - Mental disorder [Recovered/Resolved]
  - Irritability [Recovered/Resolved]

NARRATIVE: CASE EVENT DATE: 2018
